FAERS Safety Report 17926073 (Version 3)
Quarter: 2020Q3

REPORT INFORMATION
  Report Type: Spontaneous
  Country: US (occurrence: US)
  Receive Date: 20200622
  Receipt Date: 20200719
  Transmission Date: 20201103
  Serious: Yes (Death, Hospitalization)
  Sender: FDA-Public Use
  Company Number: US-LEXICON PHARMACEUTICALS, INC-20-1606-00476

PATIENT
  Age: 82 Year
  Sex: Female

DRUGS (1)
  1. XERMELO [Suspect]
     Active Substance: TELOTRISTAT ETHYL
     Indication: CARCINOID SYNDROME
     Dates: start: 20190810

REACTIONS (6)
  - Dizziness [Unknown]
  - Malaise [Unknown]
  - Death [Fatal]
  - Abdominal discomfort [Unknown]
  - Fatigue [Unknown]
  - Abdominal pain [Unknown]
